FAERS Safety Report 5720094-0 (Version None)
Quarter: 2008Q2

REPORT INFORMATION
  Report Type: 
  Country: None (occurrence: None)
  Receive Date: 20080428
  Receipt Date: 20080414
  Transmission Date: 20081010
  Serious: Yes (Hospitalization)
  Sender: FDA-Public Use
  Company Number: AT-ASTRAZENECA-2008SE02135

PATIENT
  Age: 19929 Day
  Sex: Male
  Weight: 100 kg

DRUGS (12)
  1. BLOPRESS [Suspect]
     Indication: HYPERTENSION
     Route: 048
     Dates: start: 20071211
  2. RAMIPRIL [Interacting]
     Indication: HYPERTENSION
     Route: 048
     Dates: start: 20071204, end: 20071211
  3. MARAVIROC [Interacting]
     Indication: HIV INFECTION
     Route: 048
     Dates: start: 20071106
  4. MK-0518 (RALTEGRAVIR) [Interacting]
     Indication: HIV INFECTION
     Route: 048
     Dates: start: 20071106
  5. NORVASC [Interacting]
     Indication: HYPERTENSION
     Route: 048
     Dates: start: 20071211
  6. ACTOS [Concomitant]
     Route: 048
     Dates: start: 20070911
  7. METFORMIN HCL [Concomitant]
     Route: 048
     Dates: start: 20060117
  8. EPIVIR [Concomitant]
     Route: 048
     Dates: start: 20071106
  9. NORVIR [Concomitant]
     Route: 048
     Dates: start: 20071106
  10. EBRANTIL [Concomitant]
     Route: 048
     Dates: start: 20071218
  11. TMC-125 (ETRAVIRINE) [Concomitant]
     Route: 048
     Dates: start: 20071106
  12. TMC-114 (DARUNAVIR) [Concomitant]
     Route: 048
     Dates: start: 20071106

REACTIONS (2)
  - DRUG INTERACTION [None]
  - HYPERTENSIVE CRISIS [None]
